FAERS Safety Report 9129031 (Version 1)
Quarter: 2013Q1

REPORT INFORMATION
  Report Type: Spontaneous
  Country: US (occurrence: US)
  Receive Date: 20130125
  Receipt Date: 20130125
  Transmission Date: 20140127
  Serious: No
  Sender: FDA-Public Use
  Company Number: US-BRACCO-008797

PATIENT
  Age: 49 Year
  Sex: Female
  Weight: 73 kg

DRUGS (2)
  1. MULTIHANCE [Suspect]
     Indication: NUCLEAR MAGNETIC RESONANCE IMAGING BRAIN
     Dosage: AE OCCURRED DURING INJECTION OF CONTRAST, FULL DOSAGE NOT GIVEN
     Route: 042
     Dates: start: 20121025, end: 20121025
  2. MULTIHANCE [Suspect]
     Indication: HEADACHE
     Dosage: AE OCCURRED DURING INJECTION OF CONTRAST, FULL DOSAGE NOT GIVEN
     Route: 042
     Dates: start: 20121025, end: 20121025

REACTIONS (3)
  - Dysphonia [Recovered/Resolved]
  - Dyspnoea [Recovered/Resolved]
  - Cough [Recovered/Resolved]
